FAERS Safety Report 24768434 (Version 1)
Quarter: 2024Q4

REPORT INFORMATION
  Report Type: Spontaneous
  Country: US (occurrence: US)
  Receive Date: 20241223
  Receipt Date: 20241223
  Transmission Date: 20250115
  Serious: Yes (Hospitalization, Other)
  Sender: BRISTOL-MYERS SQUIBB COMPANY
  Company Number: US-BRISTOL-MYERS SQUIBB COMPANY-2024-194174

PATIENT
  Age: 71 Year
  Sex: Female
  Weight: 82.55 kg

DRUGS (1)
  1. ONUREG [Suspect]
     Active Substance: AZACITIDINE
     Indication: Leukaemia
     Dosage: FREQUENCY: 2 WEEKS ON, 1 WEEK OFF
     Route: 048

REACTIONS (2)
  - Pneumonia [Recovering/Resolving]
  - Off label use [Unknown]
